FAERS Safety Report 9270604 (Version 1)
Quarter: 2013Q2

REPORT INFORMATION
  Report Type: Spontaneous
  Country: NL (occurrence: NL)
  Receive Date: 20130503
  Receipt Date: 20130503
  Transmission Date: 20140414
  Serious: Yes (Hospitalization)
  Sender: FDA-Public Use
  Company Number: PHHY2013NL039353

PATIENT
  Age: 43 Year
  Sex: Female

DRUGS (2)
  1. CLOMIPRAMINE [Suspect]
     Indication: PSYCHOTIC DISORDER
  2. OLANZAPINE [Suspect]
     Indication: PSYCHOTIC DISORDER

REACTIONS (12)
  - Gastrointestinal necrosis [Recovering/Resolving]
  - Shock [Recovering/Resolving]
  - Blood pressure decreased [Recovering/Resolving]
  - Peripheral coldness [Recovering/Resolving]
  - Abdominal distension [Recovering/Resolving]
  - Gastric perforation [Recovering/Resolving]
  - Abdominal pain upper [Recovering/Resolving]
  - Abdominal pain [Recovering/Resolving]
  - Nausea [Recovering/Resolving]
  - Impaired gastric emptying [Recovering/Resolving]
  - Tachypnoea [Recovering/Resolving]
  - Tachycardia [Recovering/Resolving]
